FAERS Safety Report 5903266-1 (Version None)
Quarter: 2008Q3

REPORT INFORMATION
  Report Type: 
  Country: None (occurrence: None)
  Receive Date: 20080926
  Receipt Date: 20080924
  Transmission Date: 20090109
  Serious: Yes (Other)
  Sender: FDA-Public Use
  Company Number: 034283

PATIENT
  Age: 56 Year
  Sex: Female
  Weight: 65.8 kg

DRUGS (5)
  1. FLUOXETINE [Suspect]
     Indication: DEPRESSION
     Dosage: 20 MG, DIVIDED; 40MG,DIVIDED; 60 MG,TID
     Dates: start: 20071001, end: 20080701
  2. FLUOXETINE [Suspect]
     Indication: DEPRESSION
     Dosage: 20 MG, DIVIDED; 40MG,DIVIDED; 60 MG,TID
     Dates: start: 20080701
  3. FLUOXETINE [Suspect]
     Indication: DEPRESSION
     Dosage: 20 MG, DIVIDED; 40MG,DIVIDED; 60 MG,TID
     Dates: start: 20080726
  4. ASPIRIN [Concomitant]
  5. TRIAMTERENE AND HYDROCHLOROTHIAZIDE [Concomitant]

REACTIONS (3)
  - MYOCARDIAL INFARCTION [None]
  - PANIC ATTACK [None]
  - STRESS [None]
